FAERS Safety Report 24544939 (Version 1)
Quarter: 2024Q4

REPORT INFORMATION
  Report Type: Spontaneous
  Country: US (occurrence: US)
  Receive Date: 20241024
  Receipt Date: 20241024
  Transmission Date: 20250114
  Serious: No
  Sender: PFIZER
  Company Number: US-PFIZER INC-202400280204

PATIENT
  Age: 57 Year
  Sex: Female
  Weight: 45.351 kg

DRUGS (2)
  1. IBRANCE [Suspect]
     Active Substance: PALBOCICLIB
     Indication: Breast cancer stage IV
     Dosage: UNK, DAILY
     Dates: start: 202309
  2. LETROZOLE [Suspect]
     Active Substance: LETROZOLE
     Dosage: UNK, DAILY

REACTIONS (1)
  - Blood test abnormal [Unknown]
